FAERS Safety Report 4265568-7 (Version None)
Quarter: 2004Q1

REPORT INFORMATION
  Report Type: 
  Country: None (occurrence: None)
  Receive Date: 20040106
  Receipt Date: 20031223
  Transmission Date: 20041129
  Serious: Yes (Hospitalization)
  Sender: FDA-Public Use
  Company Number: 03P-163-0245753-00

PATIENT
  Age: 46 Year
  Sex: Male

DRUGS (2)
  1. NORVIR [Suspect]
     Indication: HIV INFECTION
     Dosage: PER ORAL
     Route: 048
  2. TIPRANAVIR [Concomitant]

REACTIONS (2)
  - CHRONIC OBSTRUCTIVE AIRWAYS DISEASE EXACERBATED [None]
  - PYREXIA [None]
